FAERS Safety Report 6920684-3 (Version None)
Quarter: 2010Q3

REPORT INFORMATION
  Report Type: 
  Country: None (occurrence: None)
  Receive Date: 20100812
  Receipt Date: 20100729
  Transmission Date: 20110219
  Serious: Yes (Other)
  Sender: FDA-Public Use
  Company Number: US-ELI_LILLY_AND_COMPANY-US201008002187

PATIENT
  Sex: Female

DRUGS (10)
  1. FORTEO [Suspect]
     Indication: OSTEOPOROSIS
     Dosage: 20 UG, DAILY (1/D)
     Dates: start: 20090108, end: 20100610
  2. FORTEO [Suspect]
     Dosage: 20 UG, DAILY (1/D)
  3. CALAN [Concomitant]
     Indication: HYPERTENSION
     Dosage: 240 MG, DAILY (1/D)
  4. HYZAAR [Concomitant]
     Indication: HYPERTENSION
     Dosage: 100/125 MG, DAILY (1/D)
  5. REMERON [Concomitant]
     Indication: ANXIETY
     Dosage: 30 MG, DAILY (1/D)
  6. TENORMIN [Concomitant]
     Indication: HYPERTENSION
     Dosage: 25 MG, DAILY (1/D)
  7. XANAX [Concomitant]
     Indication: ANXIETY
     Dosage: 0.25 MG, 1/2 ONCE DAILY
  8. RELAFEN [Concomitant]
     Indication: PAIN
     Dosage: 375 MG, AS NEEDED
  9. ADVIL LIQUI-GELS [Concomitant]
     Dosage: 1 D/F, AS NEEDED
  10. TYLENOL (CAPLET) [Concomitant]
     Dosage: 1 D/F, AS NEEDED

REACTIONS (2)
  - BLOOD ALKALINE PHOSPHATASE INCREASED [None]
  - WRIST FRACTURE [None]
